FAERS Safety Report 10020673 (Version 2)
Quarter: 2014Q1

REPORT INFORMATION
  Report Type: Spontaneous
  Country: DZ (occurrence: DZ)
  Receive Date: 20140319
  Receipt Date: 20140319
  Transmission Date: 20141002
  Serious: Yes (Other)
  Sender: FDA-Public Use
  Company Number: DZ-ROCHE-1351983

PATIENT
  Age: 48 Year
  Sex: Female

DRUGS (2)
  1. PEGASYS [Suspect]
     Indication: HEPATITIS C
     Route: 058
     Dates: start: 2013
  2. COPEGUS [Suspect]
     Indication: HEPATITIS C
     Dosage: 5 ORAL TABLETS OF 200 MG PER DAY.
     Route: 048
     Dates: start: 2013

REACTIONS (4)
  - Leukopenia [Unknown]
  - Thrombocytopenia [Recovering/Resolving]
  - Neutropenia [Unknown]
  - Skin lesion [Recovering/Resolving]
